FAERS Safety Report 7758297 (Version 4)
Quarter: 2014Q1

REPORT INFORMATION
  Report Type: Spontaneous
  Country: US (occurrence: US)
  Receive Date: 20110112
  Receipt Date: 20140313
  Transmission Date: 20141002
  Serious: Yes (Other)
  Sender: FDA-Public Use
  Company Number: US-ALLERGAN-1006084US

PATIENT
  Age: 64 Year
  Sex: Male

DRUGS (7)
  1. RESTASIS [Suspect]
     Indication: DRY EYE
     Dosage: UNK
     Route: 047
     Dates: start: 20100412
  2. PREVACID [Concomitant]
     Indication: GASTROOESOPHAGEAL REFLUX DISEASE
     Dosage: UNK
  3. REFRESH FREE [Concomitant]
     Dosage: UNK
  4. VITAMIN D [Concomitant]
     Dosage: EVERY 6 DAYS
  5. VITAMIN B [Concomitant]
     Dosage: UNK
  6. OMEGA 3 FISH OIL [Concomitant]
     Dosage: UNK
  7. CENTRUM SILVER [Concomitant]
     Dosage: UNK

REACTIONS (5)
  - Trabeculectomy [Recovered/Resolved]
  - Dysgeusia [Recovered/Resolved]
  - Sinus congestion [Recovered/Resolved]
  - Sinusitis [Recovered/Resolved]
  - Eye pain [Unknown]
